FAERS Safety Report 9237130 (Version 1)
Quarter: 2013Q2

REPORT INFORMATION
  Report Type: Spontaneous
  Country: US (occurrence: US)
  Receive Date: 20130417
  Receipt Date: 20130417
  Transmission Date: 20140414
  Serious: Yes (Other)
  Sender: FDA-Public Use
  Company Number: US-PFIZER INC-2013116046

PATIENT
  Sex: Female

DRUGS (1)
  1. ALESSE-21 [Suspect]
     Indication: CONTRACEPTION
     Dosage: UNK
     Dates: start: 2012

REACTIONS (3)
  - Fibromyalgia [Unknown]
  - Fatigue [Unknown]
  - Myalgia [Unknown]
